FAERS Safety Report 7819656-6 (Version None)
Quarter: 2011Q4

REPORT INFORMATION
  Report Type: 
  Country: None (occurrence: None)
  Receive Date: 20111018
  Receipt Date: 20111004
  Transmission Date: 20120403
  Serious: Yes (Other)
  Sender: FDA-Public Use
  Company Number: PL-MYLANLABS-2011S1021094

PATIENT
  Age: 64 Year
  Sex: Male

DRUGS (6)
  1. METHOTREXATE [Concomitant]
     Indication: DERMATITIS ATOPIC
     Dosage: SYSTEMIC
     Route: 065
  2. CYCLOSPORINE [Suspect]
     Indication: DERMATITIS ATOPIC
     Dosage: 2.5 MG/KG
     Route: 065
  3. AZATHIOPRINE [Suspect]
     Indication: DERMATITIS ATOPIC
     Route: 065
  4. MYCOPHENOLATE MOFETIL [Suspect]
     Indication: DERMATITIS ATOPIC
     Route: 065
  5. CYCLOSPORINE [Suspect]
     Dosage: 3.5 MG/KG
     Route: 065
  6. ACITRETIN [Concomitant]
     Indication: DERMATITIS ATOPIC
     Route: 065

REACTIONS (2)
  - MYCOSIS FUNGOIDES [None]
  - GASTROINTESTINAL DISORDER [None]
